FAERS Safety Report 25925141 (Version 1)
Quarter: 2025Q4

REPORT INFORMATION
  Report Type: Spontaneous
  Country: US (occurrence: None)
  Receive Date: 20251013
  Receipt Date: 20251013
  Transmission Date: 20260118
  Serious: No
  Sender: FDA-CTU
  Company Number: None

PATIENT
  Age: 74 Year
  Sex: Female
  Weight: 54.9 kg

DRUGS (1)
  1. PAXLOVID [Suspect]
     Active Substance: NIRMATRELVIR\RITONAVIR
     Indication: COVID-19
     Dosage: 3 TABLET(S)   TWICE A DAY ORAL
     Route: 048
     Dates: start: 20250919, end: 20250919

REACTIONS (3)
  - Tongue coated [None]
  - Tongue coated [None]
  - Tremor [None]

NARRATIVE: CASE EVENT DATE: 20250919
